FAERS Safety Report 6475796-8 (Version None)
Quarter: 2009Q4

REPORT INFORMATION
  Report Type: 
  Country: None (occurrence: None)
  Receive Date: 20091204
  Receipt Date: 20091124
  Transmission Date: 20100525
  Serious: Yes (Hospitalization, Other)
  Sender: FDA-Public Use
  Company Number: MX-ELI_LILLY_AND_COMPANY-MX200902001187

PATIENT
  Age: 17 Year
  Sex: Male
  Weight: 70 kg

DRUGS (4)
  1. CYMBALTA [Suspect]
     Indication: MAJOR DEPRESSION
     Dosage: 60 MG, DAILY (1/D)
     Route: 048
     Dates: start: 20080901
  2. CYMBALTA [Suspect]
     Dosage: 120 MG, UNKNOWN
     Route: 065
  3. CYMBALTA [Suspect]
     Dosage: 90 MG, UNKNOWN
     Route: 065
  4. CYMBALTA [Suspect]
     Dosage: 120 MG, UNKNOWN
     Route: 065

REACTIONS (3)
  - CONVULSION [None]
  - EPILEPSY [None]
  - MAJOR DEPRESSION [None]
